FAERS Safety Report 6439195-7 (Version None)
Quarter: 2009Q4

REPORT INFORMATION
  Report Type: 
  Country: None (occurrence: None)
  Receive Date: 20091113
  Receipt Date: 20091106
  Transmission Date: 20100525
  Serious: Yes (Other)
  Sender: FDA-Public Use
  Company Number: BR-PFIZER INC-2009294250

PATIENT
  Age: 47 Year
  Sex: Male

DRUGS (4)
  1. CELEBRA [Suspect]
     Indication: PAIN IN EXTREMITY
     Dosage: UNK
     Route: 048
     Dates: start: 20091001
  2. PROPRANOLOL [Concomitant]
     Dosage: UNK
  3. LOSARTAN [Concomitant]
     Dosage: UNK
  4. LOSARTAN [Concomitant]
     Dosage: UNK

REACTIONS (4)
  - CHEST PAIN [None]
  - ERYTHEMA [None]
  - HEART RATE DECREASED [None]
  - HICCUPS [None]
